FAERS Safety Report 23781733 (Version 1)
Quarter: 2024Q2

REPORT INFORMATION
  Report Type: Report from Study
  Country: US (occurrence: US)
  Receive Date: 20240425
  Receipt Date: 20240425
  Transmission Date: 20240716
  Serious: Yes (Hospitalization)
  Sender: FDA-Public Use
  Company Number: US-GILEAD-2024-0670513

PATIENT
  Sex: Female

DRUGS (12)
  1. AMBRISENTAN [Suspect]
     Active Substance: AMBRISENTAN
     Indication: Pulmonary arterial hypertension
     Dosage: 5 MG, BID
     Route: 065
     Dates: start: 20240326
  2. SYMBICORT [Concomitant]
     Active Substance: BUDESONIDE\FORMOTEROL FUMARATE DIHYDRATE
     Dosage: UNK
  3. BUDESONIDE [Concomitant]
     Active Substance: BUDESONIDE
  4. POTASSIUM CHLORIDE [Concomitant]
     Active Substance: POTASSIUM CHLORIDE
  5. OMEPRAZOLE [Concomitant]
     Active Substance: OMEPRAZOLE
  6. DIGOXIN [Concomitant]
     Active Substance: DIGOXIN
  7. TORSEMIDE [Concomitant]
     Active Substance: TORSEMIDE
  8. TAMOXIFEN [Concomitant]
     Active Substance: TAMOXIFEN
  9. WARFARIN [Concomitant]
     Active Substance: WARFARIN
  10. SILDENAFIL [Concomitant]
     Active Substance: SILDENAFIL
  11. LEVOTHYROXINE [Concomitant]
     Active Substance: LEVOTHYROXINE\LEVOTHYROXINE SODIUM
  12. METOPROLOL [Concomitant]
     Active Substance: METOPROLOL

REACTIONS (1)
  - Dyspnoea [Unknown]
